FAERS Safety Report 11239175 (Version 1)
Quarter: 2015Q3

REPORT INFORMATION
  Report Type: Spontaneous
  Country: US (occurrence: None)
  Receive Date: 20150701
  Receipt Date: 20150701
  Transmission Date: 20151125
  Serious: Yes (Other)
  Sender: FDA-Public Use
  Company Number: DEP_03110_2015

PATIENT
  Age: 49 Year
  Sex: Female
  Weight: 136.99 kg

DRUGS (7)
  1. GRALISE [Suspect]
     Active Substance: GABAPENTIN
     Indication: MERALGIA PARAESTHETICA
     Route: 048
     Dates: start: 20150618, end: 20150618
  2. GRALISE [Suspect]
     Active Substance: GABAPENTIN
     Indication: OFF LABEL USE
     Route: 048
     Dates: start: 20150618, end: 20150618
  3. ARMOUR THYROID [Concomitant]
     Active Substance: THYROID, PORCINE\THYROID, UNSPECIFIED
  4. DILTIAZEM [Concomitant]
     Active Substance: DILTIAZEM
  5. NALTREXONE [Concomitant]
     Active Substance: NALTREXONE
  6. VITAMINS (UNSPECIFIED) [Concomitant]
     Active Substance: VITAMINS
  7. GRALISE [Suspect]
     Active Substance: GABAPENTIN
     Indication: FIBROMYALGIA
     Route: 048
     Dates: start: 20150618, end: 20150618

REACTIONS (5)
  - Throat tightness [None]
  - Food craving [None]
  - Weight increased [None]
  - Dyspnoea [None]
  - Inappropriate schedule of drug administration [None]

NARRATIVE: CASE EVENT DATE: 20150618
